FAERS Safety Report 9143873 (Version 2)
Quarter: 2013Q1

REPORT INFORMATION
  Report Type: Spontaneous
  Country: JP (occurrence: JP)
  Receive Date: 20130306
  Receipt Date: 20130320
  Transmission Date: 20140127
  Serious: Yes (Hospitalization, Other)
  Sender: FDA-Public Use
  Company Number: JP-BAYER-2013-028450

PATIENT
  Age: 28 Week
  Sex: 0

DRUGS (11)
  1. BAYASPIRIN [Suspect]
     Indication: ANTIPLATELET THERAPY
     Dosage: 100 MG, QD
     Route: 064
  2. CORTICOSTEROIDS [Concomitant]
     Indication: THROMBOTIC THROMBOCYTOPENIC PURPURA
     Route: 064
  3. RED BLOOD CELLS [Concomitant]
     Indication: THROMBOTIC THROMBOCYTOPENIC PURPURA
     Dosage: 10 U, UNK
  4. RED BLOOD CELLS [Concomitant]
     Indication: THROMBOTIC THROMBOCYTOPENIC PURPURA
     Dosage: 6 U, UNK
  5. PLATELETS, HUMAN BLOOD [Concomitant]
     Indication: THROMBOTIC THROMBOCYTOPENIC PURPURA
     Dosage: 20 U, UNK
  6. PLATELETS, HUMAN BLOOD [Concomitant]
     Indication: THROMBOTIC THROMBOCYTOPENIC PURPURA
     Dosage: 20 U, UNK
  7. PLASMA [Concomitant]
     Indication: THROMBOTIC THROMBOCYTOPENIC PURPURA
     Dosage: 55 ML/KG, UNK
  8. PLASMA [Concomitant]
     Indication: THROMBOTIC THROMBOCYTOPENIC PURPURA
     Dosage: UNK
  9. PLASMA, FRESH FROZEN [Concomitant]
     Indication: THROMBOTIC THROMBOCYTOPENIC PURPURA
     Dosage: UNK
     Route: 064
  10. METHYLPREDNISOLONE [Concomitant]
     Indication: THROMBOTIC THROMBOCYTOPENIC PURPURA
     Route: 064
  11. PREDNISOLONE [Concomitant]
     Indication: THROMBOTIC THROMBOCYTOPENIC PURPURA
     Route: 064

REACTIONS (2)
  - Foetal growth restriction [None]
  - Low birth weight baby [None]
